FAERS Safety Report 17229086 (Version 1)
Quarter: 2020Q1

REPORT INFORMATION
  Report Type: Spontaneous
  Country: US (occurrence: US)
  Receive Date: 20200102
  Receipt Date: 20200102
  Transmission Date: 20200409
  Serious: Yes (Hospitalization, Disabling, Other)
  Sender: FDA-Public Use
  Company Number: None

PATIENT
  Age: 63 Year
  Sex: Female
  Weight: 99 kg

DRUGS (1)
  1. AVASTIN [Suspect]
     Active Substance: BEVACIZUMAB
     Indication: DIABETIC RETINOPATHY
     Dosage: ?          QUANTITY:1 INJECTION(S);OTHER FREQUENCY:IN EACH EYE;OTHER ROUTE:INTRAVITREAL INJECTION?
     Dates: start: 20191226, end: 20191226

REACTIONS (2)
  - Cerebrovascular accident [None]
  - Cardiac failure congestive [None]

NARRATIVE: CASE EVENT DATE: 20191227
